FAERS Safety Report 9274889 (Version 3)
Quarter: 2014Q3

REPORT INFORMATION
  Report Type: Report from Study
  Country: JP (occurrence: JP)
  Receive Date: 20130507
  Receipt Date: 20140822
  Transmission Date: 20150326
  Serious: Yes (Death, Life-Threatening, Hospitalization)
  Sender: FDA-Public Use
  Company Number: JP-009507513-1305JPN002520

PATIENT
  Age: 65 Year
  Sex: Male

DRUGS (8)
  1. LOXONIN [Suspect]
     Active Substance: LOXOPROFEN SODIUM
     Indication: C-REACTIVE PROTEIN INCREASED
  2. BAKTAR [Concomitant]
     Active Substance: SULFAMETHOXAZOLE\TRIMETHOPRIM
     Indication: PROPHYLAXIS
     Dosage: SULFAMETHOXAZOLE 1200 MG, TRIMETHOPRIM 240 MG, TID
     Route: 048
     Dates: end: 20121125
  3. DIFLUCAN [Concomitant]
     Active Substance: FLUCONAZOLE
     Indication: PROPHYLAXIS
     Dosage: 100 MG, QD
     Route: 048
     Dates: end: 20121125
  4. LOXONIN [Suspect]
     Active Substance: LOXOPROFEN SODIUM
     Indication: MYCOSIS FUNGOIDES
     Dosage: 60 MG, TID
     Route: 048
     Dates: start: 20121210, end: 20121228
  5. LOXONIN [Suspect]
     Active Substance: LOXOPROFEN SODIUM
     Indication: HEAT THERAPY
  6. ZOLINZA [Suspect]
     Active Substance: VORINOSTAT
     Indication: MYCOSIS FUNGOIDES
     Dosage: 400 MG, QD
     Route: 048
     Dates: start: 20121119, end: 20121120
  7. ZOLINZA [Suspect]
     Active Substance: VORINOSTAT
     Dosage: 300 MG, QD
     Route: 048
     Dates: start: 20121126, end: 20130110
  8. LOXONIN [Suspect]
     Active Substance: LOXOPROFEN SODIUM
     Indication: PAIN
     Dosage: 60 MG, PRN
     Route: 048
     Dates: start: 20121229, end: 20130111

REACTIONS (8)
  - Nausea [Recovered/Resolved]
  - Pyrexia [Recovered/Resolved]
  - Fibrin degradation products increased [Not Recovered/Not Resolved]
  - Pancytopenia [Not Recovered/Not Resolved]
  - Death [Fatal]
  - Fibrin D dimer increased [Not Recovered/Not Resolved]
  - C-reactive protein increased [Not Recovered/Not Resolved]
  - Pyrexia [Recovered/Resolved]

NARRATIVE: CASE EVENT DATE: 20121120
